FAERS Safety Report 15896626 (Version 1)
Quarter: 2019Q1

REPORT INFORMATION
  Report Type: Spontaneous
  Country: BR (occurrence: BR)
  Receive Date: 20190131
  Receipt Date: 20190131
  Transmission Date: 20190417
  Serious: Yes (Other)
  Sender: FDA-Public Use
  Company Number: BR-009507513-1901BRA009204

PATIENT
  Age: 41 Year
  Sex: Female
  Weight: 62 kg

DRUGS (4)
  1. NUVARING [Suspect]
     Active Substance: ETHINYL ESTRADIOL\ETONOGESTREL
     Indication: CONTRACEPTION
     Dosage: 1 RING FOR 3 WEEKS, FOLLOWED BY A 7 DAY PAUSE
     Route: 067
     Dates: start: 2006
  2. NUVARING [Suspect]
     Active Substance: ETHINYL ESTRADIOL\ETONOGESTREL
     Dosage: 1RING FOR 3 WEEKS, FOLLOWED BY A 7 DAY PAUSE
     Route: 067
     Dates: start: 20181222, end: 20190109
  3. NUVARING [Suspect]
     Active Substance: ETHINYL ESTRADIOL\ETONOGESTREL
     Dosage: 1RING FOR 3 WEEKS, FOLLOWED BY A 7 DAY PAUSE
     Route: 067
     Dates: start: 20190109
  4. NUVARING [Suspect]
     Active Substance: ETHINYL ESTRADIOL\ETONOGESTREL
     Dosage: 1RING FOR 3 WEEKS, FOLLOWED BY A 7 DAY PAUSE
     Route: 067
     Dates: start: 2013

REACTIONS (6)
  - Diabetes mellitus [Unknown]
  - Pollakiuria [Unknown]
  - Device breakage [Recovered/Resolved]
  - Therapeutic response unexpected [Unknown]
  - Device breakage [Recovered/Resolved]
  - Vulvovaginal discomfort [Unknown]

NARRATIVE: CASE EVENT DATE: 2013
